FAERS Safety Report 4809906-2 (Version None)
Quarter: 2005Q4

REPORT INFORMATION
  Report Type: 
  Country: None (occurrence: None)
  Receive Date: 20051024
  Receipt Date: 20051024
  Transmission Date: 20060501
  Serious: Yes (Hospitalization)
  Sender: FDA-Public Use
  Company Number: None

PATIENT
  Age: 56 Year
  Sex: Male

DRUGS (13)
  1. GATIFLOXACIN [Suspect]
     Dosage: 400MG PO QD
     Route: 048
     Dates: start: 20050806, end: 20050817
  2. ASPIRIN [Concomitant]
  3. COLACE [Concomitant]
  4. ENALAPRIL [Concomitant]
  5. FELODIPINE [Concomitant]
  6. GLYBURIDE [Concomitant]
  7. HYDROCHLOROTHIAZIDE [Concomitant]
  8. METOPROLOL [Concomitant]
  9. FLAGYL [Concomitant]
  10. NICOTINE [Concomitant]
  11. PERCOCET [Concomitant]
  12. SILDENAFIL [Concomitant]
  13. ZOCOR [Concomitant]

REACTIONS (3)
  - ASTHENIA [None]
  - BLOOD CREATININE INCREASED [None]
  - BLOOD GLUCOSE INCREASED [None]
